FAERS Safety Report 11810502 (Version 1)
Quarter: 2015Q4

REPORT INFORMATION
  Report Type: Spontaneous
  Country: US (occurrence: None)
  Receive Date: 20151207
  Receipt Date: 20151207
  Transmission Date: 20160305
  Serious: No
  Sender: FDA-Public Use
  Company Number: None

PATIENT
  Age: 46 Year
  Sex: Female

DRUGS (10)
  1. MORPHINE [Concomitant]
     Active Substance: MORPHINE
  2. AVASTIN [Concomitant]
     Active Substance: BEVACIZUMAB
  3. CALCIUM [Concomitant]
     Active Substance: CALCIUM
  4. SENNA LAXATIVE [Concomitant]
     Active Substance: SENNOSIDES A AND B
  5. MAGNECAP [Concomitant]
  6. MIRALAX [Concomitant]
     Active Substance: POLYETHYLENE GLYCOL 3350
  7. RESVERATROL [Concomitant]
     Active Substance: RESVERATROL
  8. CAPECITABINE 600MG TEVA [Suspect]
     Active Substance: CAPECITABINE
     Indication: COLON CANCER
     Route: 048
     Dates: start: 201509, end: 20151118
  9. CURCUMIN [Concomitant]
     Active Substance: CURCUMIN
  10. OXYCODONE [Concomitant]
     Active Substance: OXYCODONE

REACTIONS (4)
  - Nausea [None]
  - Constipation [None]
  - Pain [None]
  - Decreased appetite [None]

NARRATIVE: CASE EVENT DATE: 201510
